FAERS Safety Report 12525171 (Version 1)
Quarter: 2016Q3

REPORT INFORMATION
  Report Type: Spontaneous
  Country: US (occurrence: US)
  Receive Date: 20160704
  Receipt Date: 20160704
  Transmission Date: 20161109
  Serious: Yes (Other)
  Sender: FDA-Public Use
  Company Number: US-ELI_LILLY_AND_COMPANY-US201607000221

PATIENT
  Age: 3 Year
  Sex: Female

DRUGS (1)
  1. GLUCAGON. [Suspect]
     Active Substance: GLUCAGON
     Indication: TYPE 1 DIABETES MELLITUS
     Dosage: UNK, UNKNOWN
     Route: 065
     Dates: start: 2001, end: 2001

REACTIONS (1)
  - Hypersensitivity [Recovered/Resolved]

NARRATIVE: CASE EVENT DATE: 2001
